FAERS Safety Report 25873082 (Version 2)
Quarter: 2025Q4

REPORT INFORMATION
  Report Type: Report from Study
  Country: US (occurrence: US)
  Receive Date: 20251002
  Receipt Date: 20251015
  Transmission Date: 20260118
  Serious: Yes (Hospitalization, Other)
  Sender: ABBVIE
  Company Number: US-ABBVIE-6454251

PATIENT
  Age: 77 Year
  Sex: Male

DRUGS (2)
  1. IMBRUVICA [Suspect]
     Active Substance: IBRUTINIB
     Indication: Central nervous system lymphoma
     Dosage: LAST ADMIN DATE: 2025?PATIENT IS TAKING 1- 420MG AND 1- 140MG TABLET DAILY.
     Route: 048
     Dates: start: 202507
  2. IMBRUVICA [Suspect]
     Active Substance: IBRUTINIB
     Indication: Central nervous system lymphoma
     Dosage: FIRST ADMIN DATE: 2025?PATIENT IS TAKING 1- 420MG AND 1- 140MG TABLET DAILY.
     Route: 048

REACTIONS (8)
  - Echocardiogram abnormal [Unknown]
  - Sepsis [Unknown]
  - Chromaturia [Unknown]
  - Dizziness [Not Recovered/Not Resolved]
  - Diarrhoea [Unknown]
  - Cardiotoxicity [Unknown]
  - Urinary tract infection [Unknown]
  - Asthenia [Not Recovered/Not Resolved]

NARRATIVE: CASE EVENT DATE: 20250101
